FAERS Safety Report 6481499-6 (Version None)
Quarter: 2009Q4

REPORT INFORMATION
  Report Type: 
  Country: None (occurrence: None)
  Receive Date: 20091208
  Receipt Date: 20091130
  Transmission Date: 20100525
  Serious: Yes (Hospitalization, Other)
  Sender: FDA-Public Use
  Company Number: US-ASTRAZENECA-2009SE29459

PATIENT
  Age: 52 Year
  Sex: Female

DRUGS (5)
  1. SEROQUEL XR [Suspect]
     Indication: BIPOLAR DISORDER
     Dosage: 150-300 MG DAILY
     Route: 048
     Dates: start: 20090501
  2. SEROQUEL XR [Suspect]
     Indication: SCHIZOPHRENIA
     Dosage: 150-300 MG DAILY
     Route: 048
     Dates: start: 20090501
  3. MELLARIL [Concomitant]
  4. PROZAC [Concomitant]
  5. COUMADIN [Concomitant]

REACTIONS (11)
  - BLADDER DISORDER [None]
  - CONFUSIONAL STATE [None]
  - DENTAL DISCOMFORT [None]
  - FALL [None]
  - GAIT DISTURBANCE [None]
  - INTRA-ABDOMINAL HAEMORRHAGE [None]
  - RECTAL HAEMORRHAGE [None]
  - RENAL PAIN [None]
  - SEDATION [None]
  - SOMNOLENCE [None]
  - WHITE BLOOD CELL COUNT INCREASED [None]
